FAERS Safety Report 10208081 (Version 1)
Quarter: 2014Q2

REPORT INFORMATION
  Report Type: Spontaneous
  Country: US (occurrence: None)
  Receive Date: 20140527
  Receipt Date: 20140527
  Transmission Date: 20141212
  Serious: No
  Sender: FDA-Public Use
  Company Number: None

PATIENT
  Age: 45 Year
  Sex: Female

DRUGS (2)
  1. TRIMETHOPRIM-SULFAMETHOXAZOLE [Suspect]
     Dates: start: 20120703, end: 20120713
  2. AMOXICILLIN-CLAVULANATE [Suspect]
     Dates: start: 20120716, end: 20120726

REACTIONS (10)
  - Drug-induced liver injury [None]
  - Rash [None]
  - Jaundice [None]
  - Weight decreased [None]
  - Pruritus [None]
  - Aspartate aminotransferase increased [None]
  - Alanine aminotransferase increased [None]
  - Blood alkaline phosphatase increased [None]
  - Blood bilirubin increased [None]
  - Arthralgia [None]
